FAERS Safety Report 6392290-3 (Version None)
Quarter: 2009Q4

REPORT INFORMATION
  Report Type: 
  Country: None (occurrence: None)
  Receive Date: 20091005
  Receipt Date: 20090925
  Transmission Date: 20100525
  Serious: Yes (Hospitalization)
  Sender: FDA-Public Use
  Company Number: 2009US003389

PATIENT
  Age: 15 Year
  Sex: Male

DRUGS (2)
  1. AMBISOME [Suspect]
     Indication: CANDIDIASIS
     Dosage: 125 MG, UID/QD, IV NOS
     Route: 042
     Dates: start: 20090624, end: 20090630
  2. AMBISOME [Suspect]
     Indication: CANDIDIASIS
     Dosage: 125 MG, UID/QD, IV NOS
     Route: 042
     Dates: start: 20090814, end: 20090819

REACTIONS (1)
  - PANCREATITIS [None]
